FAERS Safety Report 5697042-5 (Version None)
Quarter: 2008Q2

REPORT INFORMATION
  Report Type: 
  Country: None (occurrence: None)
  Receive Date: 20080408
  Receipt Date: 20070402
  Transmission Date: 20081010
  Serious: No
  Sender: FDA-Public Use
  Company Number: US-BAYER-US-2007-011920

PATIENT
  Age: 23 Year
  Sex: Female

DRUGS (6)
  1. YASMIN [Suspect]
     Indication: HORMONE LEVEL ABNORMAL
     Route: 048
     Dates: start: 20060501
  2. METFORMIN HCL [Suspect]
     Route: 048
  3. STARLIX [Suspect]
     Dosage: UNIT DOSE: 120 MG
     Route: 048
  4. SYNTHROID [Suspect]
     Dosage: UNIT DOSE: 125 MG
     Route: 048
  5. VITAMIN D [Suspect]
     Dosage: UNIT DOSE: 50000 IU
     Route: 048
  6. HUMAN GROWTH HORMONE, RECOMBINANT [Concomitant]
     Dates: start: 20061101, end: 20070201

REACTIONS (2)
  - BLOOD GLUCOSE INCREASED [None]
  - PHOTOSENSITIVITY REACTION [None]
